FAERS Safety Report 19659765 (Version 1)
Quarter: 2021Q3

REPORT INFORMATION
  Report Type: Spontaneous
  Country: US (occurrence: US)
  Receive Date: 20210802
  Receipt Date: 20210802
  Transmission Date: 20211014
  Serious: No
  Sender: FDA-Public Use
  Company Number: None

PATIENT

DRUGS (2)
  1. PHENYLEPHRINE [Suspect]
     Active Substance: PHENYLEPHRINE HYDROCHLORIDE
  2. ONDANSETRON [Suspect]
     Active Substance: ONDANSETRON

REACTIONS (4)
  - Product storage error [None]
  - Product appearance confusion [None]
  - Circumstance or information capable of leading to medication error [None]
  - Wrong drug [None]
